FAERS Safety Report 25737920 (Version 1)
Quarter: 2025Q3

REPORT INFORMATION
  Report Type: Spontaneous
  Country: BR (occurrence: BR)
  Receive Date: 20250829
  Receipt Date: 20250829
  Transmission Date: 20251021
  Serious: Yes (Other)
  Sender: BAXTER
  Company Number: BR-BAXTER-2025BAX019903

PATIENT
  Age: 33 Year
  Weight: 80 kg

DRUGS (18)
  1. PROPOFOL [Suspect]
     Active Substance: PROPOFOL
     Route: 065
  2. SODIUM CHLORIDE [Suspect]
     Active Substance: SODIUM CHLORIDE
     Route: 065
  3. LACTATED RINGERS SOLUTION [Suspect]
     Active Substance: CALCIUM CHLORIDE\POTASSIUM CHLORIDE\SODIUM CHLORIDE\SODIUM LACTATE
     Route: 065
  4. BUPIVACAINE [Suspect]
     Active Substance: BUPIVACAINE
     Route: 065
  5. REMIFENTANIL [Suspect]
     Active Substance: REMIFENTANIL
     Route: 065
  6. ROCURONIUM [Suspect]
     Active Substance: ROCURONIUM BROMIDE
     Route: 065
  7. DIPYRONE [Suspect]
     Active Substance: DIPYRONE
     Route: 065
  8. MORPHINE [Suspect]
     Active Substance: MORPHINE
     Route: 065
  9. CEFAZOLIN [Suspect]
     Active Substance: CEFAZOLIN
     Route: 065
  10. KETAMINE [Suspect]
     Active Substance: KETAMINE
     Route: 065
  11. DEXAMETHASONE [Suspect]
     Active Substance: DEXAMETHASONE
     Route: 065
  12. ONDANSETRON [Suspect]
     Active Substance: ONDANSETRON
     Route: 065
  13. SUGAMMADEX [Suspect]
     Active Substance: SUGAMMADEX
     Route: 065
  14. TRANEXAMIC ACID [Suspect]
     Active Substance: TRANEXAMIC ACID
     Route: 065
  15. KETOROLAC [Suspect]
     Active Substance: KETOROLAC TROMETHAMINE
     Route: 065
  16. MIDAZOLAM [Suspect]
     Active Substance: MIDAZOLAM
     Route: 065
  17. CLONIDINE [Suspect]
     Active Substance: CLONIDINE
     Route: 065
  18. FENTANYL [Suspect]
     Active Substance: FENTANYL
     Route: 065

REACTIONS (8)
  - Compartment syndrome [Recovering/Resolving]
  - Pain in extremity [Not Recovered/Not Resolved]
  - Oedema peripheral [Recovering/Resolving]
  - Mobility decreased [Recovering/Resolving]
  - Paraesthesia [Not Recovered/Not Resolved]
  - Muscular weakness [Recovering/Resolving]
  - Rhabdomyolysis [Recovering/Resolving]
  - Dyskinesia [Recovering/Resolving]

NARRATIVE: CASE EVENT DATE: 20250626
